FAERS Safety Report 4629898-9 (Version None)
Quarter: 2005Q2

REPORT INFORMATION
  Report Type: 
  Country: None (occurrence: None)
  Receive Date: 20050406
  Receipt Date: 20050321
  Transmission Date: 20051028
  Serious: Yes (Other)
  Sender: FDA-Public Use
  Company Number: FR_050306103

PATIENT
  Sex: Male

DRUGS (1)
  1. ALIMTA [Suspect]
     Indication: NON-SMALL CELL LUNG CANCER
     Dates: start: 20050101, end: 20050101

REACTIONS (3)
  - CARCINOEMBRYONIC ANTIGEN INCREASED [None]
  - FATIGUE [None]
  - RESPIRATORY DISORDER [None]
